FAERS Safety Report 11782363 (Version 1)
Quarter: 2015Q4

REPORT INFORMATION
  Report Type: Report from Study
  Country: US (occurrence: US)
  Receive Date: 20151127
  Receipt Date: 20151127
  Transmission Date: 20160305
  Serious: Yes (Hospitalization)
  Sender: FDA-Public Use
  Company Number: US-ROCHE-1568280

PATIENT
  Age: 75 Year
  Sex: Male
  Weight: 75.2 kg

DRUGS (63)
  1. AREDS 2 FORMULA [Concomitant]
     Dosage: INDICATION: OCULAR HEALTH
     Route: 065
  2. TRAMADOL. [Concomitant]
     Active Substance: TRAMADOL
     Indication: PAIN
     Route: 065
     Dates: start: 20141230
  3. LORATADINE. [Concomitant]
     Active Substance: LORATADINE
     Indication: SINUSITIS
     Route: 065
     Dates: start: 20150205
  4. SENNA [Concomitant]
     Active Substance: SENNA LEAF\SENNOSIDES\SENNOSIDES A AND B
     Indication: CONSTIPATION
     Route: 065
     Dates: start: 20141230
  5. ACETAMINOPHEN. [Concomitant]
     Active Substance: ACETAMINOPHEN
     Dosage: INDICATION: RITUXIMAB PRE-MED
     Route: 065
     Dates: start: 20150319, end: 20150319
  6. ACETAMINOPHEN. [Concomitant]
     Active Substance: ACETAMINOPHEN
     Route: 065
     Dates: start: 20150516, end: 20150516
  7. DEXAMETHASONE. [Concomitant]
     Active Substance: DEXAMETHASONE
     Route: 065
     Dates: start: 20150519, end: 20150519
  8. PALONOSETRON [Concomitant]
     Active Substance: PALONOSETRON
     Indication: PROPHYLAXIS OF NAUSEA AND VOMITING
     Dosage: INDICATION: PROPHYLAXIS FOR CHEMO-INDUCED NAUSEA/VOMITING
     Route: 065
     Dates: start: 20150319, end: 20150319
  9. WAL-SOM (DOXYLAMINE SUCCINATE) [Concomitant]
     Indication: INSOMNIA
     Route: 065
  10. GUAIFENESIN. [Concomitant]
     Active Substance: GUAIFENESIN
     Indication: SINUS CONGESTION
  11. POLYETHYLENE GLYCOL [Concomitant]
     Active Substance: POLYETHYLENE GLYCOLS
     Indication: CONSTIPATION
     Route: 065
     Dates: start: 20150109
  12. FOSAPREPITANT [Concomitant]
     Active Substance: FOSAPREPITANT
     Indication: PROPHYLAXIS OF NAUSEA AND VOMITING
     Route: 065
     Dates: start: 20150414, end: 20150414
  13. PALONOSETRON [Concomitant]
     Active Substance: PALONOSETRON
     Indication: PROPHYLAXIS OF NAUSEA AND VOMITING
     Route: 065
     Dates: start: 20150414, end: 20150414
  14. PALONOSETRON [Concomitant]
     Active Substance: PALONOSETRON
     Route: 065
     Dates: start: 20150519, end: 20150519
  15. PACKED RED BLOOD CELLS [Concomitant]
     Active Substance: HUMAN RED BLOOD CELL
     Route: 065
     Dates: start: 20150523, end: 20150523
  16. GDC-0199 (BCL-2 SELECTIVE INHIBITOR) [Suspect]
     Active Substance: VENETOCLAX
     Indication: DIFFUSE LARGE B-CELL LYMPHOMA
     Dosage: MOST RECENT DOSE: 22/APR/2015
     Route: 065
     Dates: start: 20150116
  17. SIMVASTATIN. [Concomitant]
     Active Substance: SIMVASTATIN
     Indication: HYPERLIPIDAEMIA
     Route: 065
  18. PROPRANOLOL [Concomitant]
     Active Substance: PROPRANOLOL\PROPRANOLOL HYDROCHLORIDE
     Indication: TREMOR
  19. MAGNESIUM HYDROXIDE. [Concomitant]
     Active Substance: MAGNESIUM HYDROXIDE
     Indication: CONSTIPATION
     Route: 065
     Dates: start: 20150109
  20. ACETAMINOPHEN. [Concomitant]
     Active Substance: ACETAMINOPHEN
     Route: 065
     Dates: start: 20150609, end: 20150609
  21. DEXAMETHASONE. [Concomitant]
     Active Substance: DEXAMETHASONE
     Route: 065
     Dates: start: 20150414, end: 20150414
  22. DIPHENHYDRAMINE. [Concomitant]
     Active Substance: DIPHENHYDRAMINE
     Route: 065
     Dates: start: 20150519, end: 20150519
  23. NORMAL SALINE [Concomitant]
     Active Substance: SODIUM CHLORIDE
     Route: 065
     Dates: start: 20150519, end: 20150519
  24. PACKED RED BLOOD CELLS [Concomitant]
     Active Substance: HUMAN RED BLOOD CELL
     Route: 065
     Dates: start: 20150516, end: 20150516
  25. CYCLOPHOSPHAMIDE. [Suspect]
     Active Substance: CYCLOPHOSPHAMIDE
     Indication: DIFFUSE LARGE B-CELL LYMPHOMA
     Dosage: RECEIVED MOST RECENT DOSE ON 14/APR/2015
     Route: 065
     Dates: start: 20150113
  26. VINCRISTINE [Suspect]
     Active Substance: VINCRISTINE
     Indication: DIFFUSE LARGE B-CELL LYMPHOMA
     Dosage: RECEIVED MOST RECENT DOSE ON 14/APR/2015
     Route: 065
     Dates: start: 20150113
  27. ACETAMINOPHEN. [Concomitant]
     Active Substance: ACETAMINOPHEN
     Route: 065
     Dates: start: 20150519, end: 20150519
  28. ACETAMINOPHEN. [Concomitant]
     Active Substance: ACETAMINOPHEN
     Route: 065
     Dates: start: 20150527, end: 20150527
  29. DEXAMETHASONE. [Concomitant]
     Active Substance: DEXAMETHASONE
     Dosage: INDICATION: RITUXIMAB PRE-MED
     Route: 065
     Dates: start: 20150319, end: 20150319
  30. DIPHENHYDRAMINE. [Concomitant]
     Active Substance: DIPHENHYDRAMINE
     Dosage: INDICATION: RITUXIMAB PRE-MED
     Route: 065
     Dates: start: 20150319, end: 20150319
  31. PACKED RED BLOOD CELLS [Concomitant]
     Active Substance: HUMAN RED BLOOD CELL
     Route: 065
     Dates: start: 20150530, end: 20150530
  32. ACIDOPHILUS [Concomitant]
     Active Substance: LACTOBACILLUS ACIDOPHILUS
     Indication: PROPHYLAXIS
     Dosage: REPORTED AS PROBIOTIC ACIDOPHLUS; INDICATION: PROPHYLAXIS FOR DIGESTIVE HELP
     Route: 065
  33. FLUTICASONE [Concomitant]
     Active Substance: FLUTICASONE\FLUTICASONE PROPIONATE
     Indication: SINUSITIS
     Route: 045
  34. ACETAMINOPHEN. [Concomitant]
     Active Substance: ACETAMINOPHEN
     Route: 065
     Dates: start: 20150418, end: 20150418
  35. PACKED RED BLOOD CELLS [Concomitant]
     Active Substance: HUMAN RED BLOOD CELL
     Route: 065
     Dates: start: 20150418, end: 20150418
  36. RITUXIMAB [Suspect]
     Active Substance: RITUXIMAB
     Indication: DIFFUSE LARGE B-CELL LYMPHOMA
     Dosage: MOST RECENT DOSE ON 14/APR/2015
     Route: 042
     Dates: start: 20150113
  37. PREDNISONE. [Suspect]
     Active Substance: PREDNISONE
     Indication: DIFFUSE LARGE B-CELL LYMPHOMA
     Dosage: RECEIVED MOST RECENT DOSE ON 20/APR/2015
     Route: 065
     Dates: start: 20150113
  38. METFORMIN [Concomitant]
     Active Substance: METFORMIN HYDROCHLORIDE
     Indication: DIABETES MELLITUS
     Route: 065
  39. ACYCLOVIR. [Concomitant]
     Active Substance: ACYCLOVIR
     Indication: PROPHYLAXIS
     Dosage: INDICATION: PROPHYLAXIS FOR HERPES ZOSTER
     Route: 065
     Dates: start: 20150113
  40. DOCUSATE SODIUM. [Concomitant]
     Active Substance: DOCUSATE SODIUM
     Indication: CONSTIPATION
     Route: 065
     Dates: start: 20150109
  41. SIMETHICONE (DIMETHICONE) [Concomitant]
     Active Substance: DIMETHICONE
     Indication: FLATULENCE
     Route: 065
     Dates: start: 201412
  42. ACETAMINOPHEN. [Concomitant]
     Active Substance: ACETAMINOPHEN
     Route: 065
     Dates: start: 20150408, end: 20150408
  43. ACETAMINOPHEN. [Concomitant]
     Active Substance: ACETAMINOPHEN
     Route: 065
     Dates: start: 20150502, end: 20150502
  44. ACETAMINOPHEN. [Concomitant]
     Active Substance: ACETAMINOPHEN
     Route: 065
     Dates: start: 20150523, end: 20150523
  45. FOSAPREPITANT [Concomitant]
     Active Substance: FOSAPREPITANT
     Route: 065
     Dates: start: 20150519, end: 20150519
  46. NORMAL SALINE [Concomitant]
     Active Substance: SODIUM CHLORIDE
     Route: 065
     Dates: start: 20150414, end: 20150414
  47. DOXORUBICIN [Suspect]
     Active Substance: DOXORUBICIN
     Indication: DIFFUSE LARGE B-CELL LYMPHOMA
     Dosage: RECEIVED MOST RECENT DOSE ON 14/APR/2015
     Route: 065
     Dates: start: 20150113
  48. PROPRANOLOL [Concomitant]
     Active Substance: PROPRANOLOL\PROPRANOLOL HYDROCHLORIDE
     Indication: CORONARY ARTERY DISEASE
     Dosage: REPORTED AS PROPRANOLOL EXTENDED RELEASE
     Route: 065
  49. GUAIFENESIN. [Concomitant]
     Active Substance: GUAIFENESIN
     Indication: SINUS CONGESTION
     Route: 065
     Dates: start: 20141230
  50. ACETAMINOPHEN. [Concomitant]
     Active Substance: ACETAMINOPHEN
     Dosage: INDICATION: TRANSFUSION PRE-MED
     Route: 065
     Dates: start: 20150310, end: 20150310
  51. ACETAMINOPHEN. [Concomitant]
     Active Substance: ACETAMINOPHEN
     Route: 065
     Dates: start: 20150421, end: 20150421
  52. ACETAMINOPHEN. [Concomitant]
     Active Substance: ACETAMINOPHEN
     Route: 065
     Dates: start: 20150530, end: 20150530
  53. FOSAPREPITANT [Concomitant]
     Active Substance: FOSAPREPITANT
     Indication: PROPHYLAXIS OF NAUSEA AND VOMITING
     Dosage: INDICATION: PROPHYLAXIS FOR CHEMO-INDUCED NAUSEA/VOMITING
     Route: 065
     Dates: start: 20150319, end: 20150319
  54. PACKED RED BLOOD CELLS [Concomitant]
     Active Substance: HUMAN RED BLOOD CELL
     Indication: ANAEMIA
     Dosage: SELECT IF ONGOING=NO
     Route: 065
     Dates: start: 20150310, end: 20150310
  55. ESOMEPRAZOLE [Concomitant]
     Active Substance: ESOMEPRAZOLE
     Indication: GASTROOESOPHAGEAL REFLUX DISEASE
     Route: 065
  56. TAMSULOSIN [Concomitant]
     Active Substance: TAMSULOSIN
     Indication: BENIGN PROSTATIC HYPERPLASIA
     Route: 065
  57. ASPIRIN. [Concomitant]
     Active Substance: ASPIRIN
     Indication: CORONARY ARTERY DISEASE
     Route: 065
  58. SULFAMETHOXAZOLE/TRIMETHOPRIM [Concomitant]
     Active Substance: SULFAMETHOXAZOLE\TRIMETHOPRIM
     Indication: ANTIFUNGAL PROPHYLAXIS
     Route: 065
     Dates: start: 20150113
  59. ACETAMINOPHEN. [Concomitant]
     Active Substance: ACETAMINOPHEN
     Route: 065
     Dates: start: 20150414, end: 20150414
  60. DIPHENHYDRAMINE. [Concomitant]
     Active Substance: DIPHENHYDRAMINE
     Dosage: INDICATION: RITUXIMAB PRE-MED
     Route: 065
     Dates: start: 20150414, end: 20150414
  61. DIPHENHYDRAMINE. [Concomitant]
     Active Substance: DIPHENHYDRAMINE
     Route: 065
     Dates: start: 20150609, end: 20150609
  62. NORMAL SALINE [Concomitant]
     Active Substance: SODIUM CHLORIDE
     Dosage: INDICATION: STANDARD CHEMO HYDRATION
     Route: 065
     Dates: start: 20150319, end: 20150319
  63. PACKED RED BLOOD CELLS [Concomitant]
     Active Substance: HUMAN RED BLOOD CELL
     Route: 065
     Dates: start: 20150408, end: 20150408

REACTIONS (3)
  - Thrombocytopenia [None]
  - Dyspnoea [None]
  - Pneumonia respiratory syncytial viral [Recovered/Resolved]

NARRATIVE: CASE EVENT DATE: 20150422
